FAERS Safety Report 25619624 (Version 3)
Quarter: 2025Q4

REPORT INFORMATION
  Report Type: Spontaneous
  Country: JP (occurrence: JP)
  Receive Date: 20250729
  Receipt Date: 20251112
  Transmission Date: 20260118
  Serious: Yes (Other)
  Sender: JOHNSON AND JOHNSON
  Company Number: JP-JNJFOC-20250724736

PATIENT
  Age: 83 Year
  Sex: Male

DRUGS (13)
  1. TREMFYA [Suspect]
     Active Substance: GUSELKUMAB
     Indication: Psoriasis
     Dosage: EVERY 4 TO 8 WEEKS
     Route: 058
  2. TREMFYA [Suspect]
     Active Substance: GUSELKUMAB
  3. TREMFYA [Suspect]
     Active Substance: GUSELKUMAB
  4. TREMFYA [Suspect]
     Active Substance: GUSELKUMAB
     Indication: Psoriasis
     Dosage: EVERY 4 TO 8 WEEKS
     Route: 058
  5. TREMFYA [Suspect]
     Active Substance: GUSELKUMAB
  6. TREMFYA [Suspect]
     Active Substance: GUSELKUMAB
  7. TREMFYA [Suspect]
     Active Substance: GUSELKUMAB
     Indication: Psoriasis
     Dosage: EVERY 4 TO 8 WEEKS
     Route: 058
  8. TREMFYA [Suspect]
     Active Substance: GUSELKUMAB
  9. TREMFYA [Suspect]
     Active Substance: GUSELKUMAB
  10. TREMFYA [Suspect]
     Active Substance: GUSELKUMAB
     Indication: Psoriasis
     Dosage: EVERY 4 TO 8 WEEKS
     Route: 058
  11. TREMFYA [Suspect]
     Active Substance: GUSELKUMAB
  12. TREMFYA [Suspect]
     Active Substance: GUSELKUMAB
  13. IXEKIZUMAB [Suspect]
     Active Substance: IXEKIZUMAB
     Indication: Psoriasis
     Route: 065

REACTIONS (2)
  - Neoplasm [Recovered/Resolved]
  - Drug ineffective [Unknown]
